FAERS Safety Report 14134439 (Version 1)
Quarter: 2017Q4

REPORT INFORMATION
  Report Type: Report from Study
  Country: US (occurrence: US)
  Receive Date: 20171027
  Receipt Date: 20171027
  Transmission Date: 20180321
  Serious: Yes (Hospitalization)
  Sender: FDA-Public Use
  Company Number: US-JNJFOC-20171007498

PATIENT
  Sex: Female

DRUGS (1)
  1. IMBRUVICA [Suspect]
     Active Substance: IBRUTINIB
     Indication: CHRONIC LYMPHOCYTIC LEUKAEMIA
     Route: 048

REACTIONS (6)
  - Cerebral haemorrhage [Recovered/Resolved]
  - Off label use [Unknown]
  - Contusion [Unknown]
  - Incorrect dose administered [Unknown]
  - White blood cell count decreased [Not Recovered/Not Resolved]
  - Headache [Unknown]
